FAERS Safety Report 19244019 (Version 2)
Quarter: 2022Q1

REPORT INFORMATION
  Report Type: Report from Study
  Country: KR (occurrence: KR)
  Receive Date: 20210512
  Receipt Date: 20220107
  Transmission Date: 20220423
  Serious: Yes (Death, Hospitalization, Other)
  Sender: FDA-Public Use
  Company Number: KR-CELLTRION INC.-2021KR006313

PATIENT

DRUGS (44)
  1. INVESTIGATIONAL BIOSIMILARS [Suspect]
     Active Substance: INVESTIGATIONAL BIOSIMILARS
     Indication: Product used for unknown indication
     Dosage: 300 MG
     Route: 042
     Dates: start: 20201211
  2. INVESTIGATIONAL BIOSIMILARS [Suspect]
     Active Substance: INVESTIGATIONAL BIOSIMILARS
     Dosage: 200 MG
     Route: 042
     Dates: start: 20201223
  3. INVESTIGATIONAL BIOSIMILARS [Suspect]
     Active Substance: INVESTIGATIONAL BIOSIMILARS
     Dosage: 260 MG
     Route: 042
     Dates: start: 20210108
  4. OXALIPLATIN [Suspect]
     Active Substance: OXALIPLATIN
     Indication: Product used for unknown indication
     Dosage: 73.5 MG
     Route: 042
     Dates: start: 20201211
  5. OXALIPLATIN [Suspect]
     Active Substance: OXALIPLATIN
     Dosage: 73.5 MG
     Route: 042
     Dates: start: 20201223
  6. OXALIPLATIN [Suspect]
     Active Substance: OXALIPLATIN
     Dosage: 80.5 MG
     Route: 042
     Dates: start: 20210108
  7. LEUCOVORIN [Suspect]
     Active Substance: LEUCOVORIN
     Indication: Product used for unknown indication
     Dosage: 294 MG
     Route: 042
     Dates: start: 20201211
  8. LEUCOVORIN [Suspect]
     Active Substance: LEUCOVORIN
     Dosage: 294 MG
     Route: 042
     Dates: start: 20201223
  9. LEUCOVORIN [Suspect]
     Active Substance: LEUCOVORIN
     Dosage: 322 MG
     Route: 042
     Dates: start: 20210108
  10. FLUOROURACIL [Suspect]
     Active Substance: FLUOROURACIL
     Indication: Product used for unknown indication
     Dosage: 2205 MG
     Route: 042
     Dates: start: 20201211
  11. FLUOROURACIL [Suspect]
     Active Substance: FLUOROURACIL
     Dosage: 2205 MG
     Route: 042
     Dates: start: 20201223
  12. FLUOROURACIL [Suspect]
     Active Substance: FLUOROURACIL
     Dosage: 2415 MG
     Route: 042
     Dates: start: 20210108
  13. NALOXONE HYDROCHLORIDE\OXYCODONE HYDROCHLORIDE [Concomitant]
     Active Substance: NALOXONE HYDROCHLORIDE\OXYCODONE HYDROCHLORIDE
     Indication: Abdominal pain
     Dosage: (5/2.5), 1 TABLET BID
     Route: 048
     Dates: start: 20201123, end: 20201214
  14. NALOXONE HYDROCHLORIDE\OXYCODONE HYDROCHLORIDE [Concomitant]
     Active Substance: NALOXONE HYDROCHLORIDE\OXYCODONE HYDROCHLORIDE
     Indication: Back pain
     Dosage: (10/5), 1 TABLET BID
     Route: 048
     Dates: start: 20201215, end: 20201230
  15. COMBIFLEX [ALANINE;ARGININE;CALCIUM HYDROXIDE;GLUCOSE MONOHYDRATE;GLYC [Concomitant]
     Indication: Decreased appetite
     Dosage: 1000 ML, QOD
     Route: 042
     Dates: start: 20201203, end: 20201223
  16. SODIUM BICARBONATE [Concomitant]
     Active Substance: SODIUM BICARBONATE
     Indication: Prophylaxis
     Dosage: 10 G, PRN
     Route: 048
     Dates: start: 20201226, end: 20210124
  17. SODIUM BICARBONATE [Concomitant]
     Active Substance: SODIUM BICARBONATE
     Indication: Prophylaxis
     Dosage: 10 G, PRN
     Route: 048
     Dates: start: 20201223
  18. SODIUM BICARBONATE [Concomitant]
     Active Substance: SODIUM BICARBONATE
     Indication: Stomatitis
     Dosage: 60 MEQ, PRN
     Route: 042
     Dates: start: 20210105
  19. SODIUM BICARBONATE [Concomitant]
     Active Substance: SODIUM BICARBONATE
     Indication: Hyponatraemia
  20. MORPHINE SULFATE [Concomitant]
     Active Substance: MORPHINE SULFATE
     Indication: Abdominal pain
     Dosage: 60 MG, QD
     Route: 042
     Dates: start: 20210123, end: 20210124
  21. MORPHINE SULFATE [Concomitant]
     Active Substance: MORPHINE SULFATE
     Indication: Back pain
  22. ALOXI [Concomitant]
     Active Substance: PALONOSETRON HYDROCHLORIDE
     Indication: Prophylaxis
     Dosage: 0.25 MG, PRN
     Route: 042
     Dates: start: 20201211, end: 20201211
  23. CIPROFLOXACIN [Concomitant]
     Active Substance: CIPROFLOXACIN
     Indication: Bacteraemia
     Dosage: 400 MG, QD
     Route: 042
     Dates: start: 20210119, end: 20210124
  24. CIPROFLOXACIN [Concomitant]
     Active Substance: CIPROFLOXACIN
     Indication: Sepsis
  25. NORVASC [Concomitant]
     Active Substance: AMLODIPINE BESYLATE
     Indication: Hypertension
     Dosage: 5 MG, QD
     Route: 048
     Dates: start: 20201123, end: 20201230
  26. OXYCODONE HYDROCHLORIDE [Concomitant]
     Active Substance: OXYCODONE HYDROCHLORIDE
     Indication: Abdominal pain
     Dosage: 5 MG, PRN
     Route: 048
     Dates: start: 20201130, end: 20210118
  27. OXYCODONE HYDROCHLORIDE [Concomitant]
     Active Substance: OXYCODONE HYDROCHLORIDE
     Indication: Back pain
  28. REBAMIPIDE [Concomitant]
     Active Substance: REBAMIPIDE
     Indication: Dyspepsia
     Dosage: 100 MG, TID
     Route: 048
     Dates: start: 20201201, end: 20210121
  29. DEXAMETHASONE SODIUM PHOSPHATE [Concomitant]
     Active Substance: DEXAMETHASONE SODIUM PHOSPHATE
     Indication: Prophylaxis
     Dosage: 12 MG, PRN
     Route: 042
     Dates: start: 20201211, end: 20210108
  30. DEXAMETHASONE SODIUM PHOSPHATE [Concomitant]
     Active Substance: DEXAMETHASONE SODIUM PHOSPHATE
     Indication: Hypersensitivity
  31. GASTER [Concomitant]
     Active Substance: FAMOTIDINE
     Indication: Prophylaxis against gastrointestinal ulcer
     Dosage: 20 MG, PRN
     Route: 042
     Dates: start: 20201211, end: 20210108
  32. DEXAMETHASONE [Concomitant]
     Active Substance: DEXAMETHASONE
     Indication: Prophylaxis
     Dosage: 8 MG, PRN
     Route: 048
     Dates: start: 20201212, end: 20210111
  33. GODEX [ADENINE HYDROCHLORIDE;BIFENDATE;CARNITINE OROTATE;CYANOCOBALAMI [Concomitant]
     Indication: Prophylaxis
     Dosage: 2C TID PO
     Route: 048
     Dates: start: 20201215, end: 20210121
  34. GODEX [ADENINE HYDROCHLORIDE;BIFENDATE;CARNITINE OROTATE;CYANOCOBALAMI [Concomitant]
     Indication: Hepatic failure
  35. EMEND (FOSAPREPITANT DIMEGLUMINE) [Concomitant]
     Active Substance: FOSAPREPITANT DIMEGLUMINE
     Indication: Prophylaxis of nausea and vomiting
     Dosage: 150 MG, PRN
     Route: 042
     Dates: start: 20201223, end: 20210108
  36. RAMOSETRON HYDROCHLORIDE [Concomitant]
     Active Substance: RAMOSETRON HYDROCHLORIDE
     Indication: Prophylaxis of nausea and vomiting
     Dosage: 0.1MG PRN
     Route: 048
     Dates: start: 20201223, end: 20210108
  37. LASIX [Concomitant]
     Active Substance: FUROSEMIDE
     Indication: Generalised oedema
     Dosage: 40MG PRN
     Route: 048
     Dates: start: 20201226, end: 20210122
  38. TANTUM [BENZYDAMINE HYDROCHLORIDE] [Concomitant]
     Indication: Prophylaxis
     Dosage: 100 ML, PRN
     Route: 048
     Dates: start: 20201226
  39. TANTUM [BENZYDAMINE HYDROCHLORIDE] [Concomitant]
     Indication: Stomatitis
  40. MACPERAN [METOCLOPRAMIDE] [Concomitant]
     Indication: Nausea
     Dosage: 5 MG, PRN
     Route: 048
     Dates: start: 20201226
  41. MACPERAN [METOCLOPRAMIDE] [Concomitant]
     Indication: Vomiting
  42. ACETAMINOPHEN [Concomitant]
     Active Substance: ACETAMINOPHEN
     Indication: Pyrexia
     Dosage: 1300 MG
     Route: 048
     Dates: start: 20201226
  43. SANCUSO [Concomitant]
     Active Substance: GRANISETRON
     Indication: Nausea
     Dosage: QW PATCH
     Dates: start: 20201226, end: 20210118
  44. SANCUSO [Concomitant]
     Active Substance: GRANISETRON
     Indication: Vomiting

REACTIONS (7)
  - Disease progression [Fatal]
  - Sepsis [Fatal]
  - Hepatic failure [Fatal]
  - Pupillary reflex impaired [Fatal]
  - Pulse absent [Fatal]
  - Respiratory failure [Fatal]
  - Blood bilirubin increased [Recovered/Resolved]

NARRATIVE: CASE EVENT DATE: 20201229
